FAERS Safety Report 4557696-3 (Version None)
Quarter: 2005Q1

REPORT INFORMATION
  Report Type: 
  Country: None (occurrence: None)
  Receive Date: 20050118
  Receipt Date: 20050113
  Transmission Date: 20050727
  Serious: Yes (Other)
  Sender: FDA-Public Use
  Company Number: FRWYE344317JAN05

PATIENT
  Age: 50 Year
  Sex: Female

DRUGS (1)
  1. EFFEXOR [Suspect]
     Indication: DEPRESSION
     Dosage: 37.5 MG IN THE EVENING
     Route: 048
     Dates: start: 20050111, end: 20050111

REACTIONS (2)
  - NAUSEA [None]
  - SYNCOPE VASOVAGAL [None]
